FAERS Safety Report 11294958 (Version 2)
Quarter: 2015Q4

REPORT INFORMATION
  Report Type: Spontaneous
  Country: US (occurrence: US)
  Receive Date: 20150723
  Receipt Date: 20151002
  Transmission Date: 20160304
  Serious: Yes (Hospitalization)
  Sender: FDA-Public Use
  Company Number: US-BEH-2015052459

PATIENT
  Age: 73 Year
  Sex: Male
  Weight: 79 kg

DRUGS (30)
  1. DIPHENHYDRAMINE. [Concomitant]
     Active Substance: DIPHENHYDRAMINE
  2. HEPARIN [Concomitant]
     Active Substance: HEPARIN SODIUM
     Indication: FLUSHING
  3. LIDOCAINE/PRILOCAINE [Concomitant]
  4. EPIPEN [Concomitant]
     Active Substance: EPINEPHRINE
     Indication: ANAPHYLACTIC REACTION
  5. ALEVE [Concomitant]
     Active Substance: NAPROXEN SODIUM
  6. TAMSULOSIN [Concomitant]
     Active Substance: TAMSULOSIN
  7. SINEMET [Concomitant]
     Active Substance: CARBIDOPA\LEVODOPA
  8. MULTIVITAMINS [Concomitant]
     Active Substance: VITAMINS
  9. SODIUM CHLORIDE. [Concomitant]
     Active Substance: SODIUM CHLORIDE
     Indication: FLUSHING
  10. LANTUS [Concomitant]
     Active Substance: INSULIN GLARGINE
  11. HUMALOG [Concomitant]
     Active Substance: INSULIN LISPRO
  12. AVODART [Concomitant]
     Active Substance: DUTASTERIDE
  13. SPIRONOLACTONE. [Concomitant]
     Active Substance: SPIRONOLACTONE
  14. GABAPENTIN. [Concomitant]
     Active Substance: GABAPENTIN
  15. PRIVIGEN [Suspect]
     Active Substance: HUMAN IMMUNOGLOBULIN G
     Indication: DEMYELINATING POLYNEUROPATHY
     Dosage: 10 GM VIALS (400 MG/KG AS DIRECTED)
     Route: 042
  16. POTASSIUM [Concomitant]
     Active Substance: POTASSIUM
  17. NOVOLOG [Concomitant]
     Active Substance: INSULIN ASPART
  18. AMIODARONE [Concomitant]
     Active Substance: AMIODARONE
  19. ACETAMINOPHEN. [Concomitant]
     Active Substance: ACETAMINOPHEN
  20. FUROSEMIDE. [Concomitant]
     Active Substance: FUROSEMIDE
  21. CARVEDILOL. [Concomitant]
     Active Substance: CARVEDILOL
  22. ASPIRIN. [Concomitant]
     Active Substance: ASPIRIN
  23. PRIMIDONE. [Concomitant]
     Active Substance: PRIMIDONE
  24. ARICEPT [Concomitant]
     Active Substance: DONEPEZIL HYDROCHLORIDE
  25. LMX [Concomitant]
     Active Substance: LIDOCAINE
  26. PLAVIX [Concomitant]
     Active Substance: CLOPIDOGREL BISULFATE
  27. MELATONIN [Concomitant]
     Active Substance: MELATONIN
  28. ROPINIROLE. [Concomitant]
     Active Substance: ROPINIROLE
  29. DONEPEZIL. [Concomitant]
     Active Substance: DONEPEZIL
  30. LIPITOR [Concomitant]
     Active Substance: ATORVASTATIN CALCIUM

REACTIONS (2)
  - Pneumonia [Unknown]
  - Cardiac failure [Unknown]

NARRATIVE: CASE EVENT DATE: 201506
